FAERS Safety Report 7128728-3 (Version None)
Quarter: 2010Q4

REPORT INFORMATION
  Report Type: 
  Country: None (occurrence: None)
  Receive Date: 20101130
  Receipt Date: 20100811
  Transmission Date: 20110411
  Serious: Yes (Other)
  Sender: FDA-Public Use
  Company Number: AU-ROCHE-741902

PATIENT
  Age: 42 Year
  Sex: Female

DRUGS (2)
  1. HERCEPTIN [Suspect]
     Indication: BREAST CANCER
     Route: 065
  2. HERCEPTIN [Suspect]
     Route: 065

REACTIONS (1)
  - HEPATIC NEOPLASM MALIGNANT [None]
